FAERS Safety Report 20299385 (Version 1)
Quarter: 2022Q1

REPORT INFORMATION
  Report Type: Spontaneous
  Country: SA (occurrence: SA)
  Receive Date: 20220105
  Receipt Date: 20220105
  Transmission Date: 20220423
  Serious: Yes (Other)
  Sender: FDA-Public Use
  Company Number: SA-MLMSERVICE-20211217-3279981-1

PATIENT
  Age: 48 Year
  Sex: Female

DRUGS (5)
  1. HYDROCORTISONE [Suspect]
     Active Substance: HYDROCORTISONE
     Indication: Crohn^s disease
     Dosage: 100 MG
     Route: 042
  2. BUDESONIDE [Suspect]
     Active Substance: BUDESONIDE
     Indication: Crohn^s disease
     Dosage: 3 DF, 1X/DAY (3 CAPSULE PER DAY FOR 4 WEEKS THEN GRADUAL WITHDRAWAL DURING THIS PERIOD)
     Route: 048
  3. BUDESONIDE [Suspect]
     Active Substance: BUDESONIDE
     Dosage: UNK (3 CAPSULE PER DAY FOR 4 WEEKS THEN GRADUAL WITHDRAWAL DURING THIS PERIOD)
     Route: 048
  4. STELARA [Concomitant]
     Active Substance: USTEKINUMAB
     Indication: Crohn^s disease
     Dosage: UNK, MONTHLY
     Route: 058
     Dates: start: 201912
  5. STELARA [Concomitant]
     Active Substance: USTEKINUMAB
     Indication: Crohn^s disease

REACTIONS (1)
  - Vulvovaginal candidiasis [Not Recovered/Not Resolved]
